FAERS Safety Report 15065447 (Version 5)
Quarter: 2019Q4

REPORT INFORMATION
  Report Type: Spontaneous
  Country: ES (occurrence: ES)
  Receive Date: 20180626
  Receipt Date: 20191112
  Transmission Date: 20200122
  Serious: Yes (Hospitalization, Other)
  Sender: FDA-Public Use
  Company Number: ES-UCBSA-2018027474

PATIENT
  Age: 74 Year
  Sex: Female

DRUGS (18)
  1. PARACETAMOL [Concomitant]
     Active Substance: ACETAMINOPHEN
     Indication: PRODUCT USED FOR UNKNOWN INDICATION
     Dosage: 1 G, (1-1-1)
     Dates: start: 20170418
  2. AMIODARONE [Concomitant]
     Active Substance: AMIODARONE
     Dosage: 200 MG, UNK,(0-1-0) EXCEPT TH AND SUN
  3. AMLODIPINE [Concomitant]
     Active Substance: AMLODIPINE BESYLATE
     Indication: PRODUCT USED FOR UNKNOWN INDICATION
     Dosage: 5 MG, 1-0-0
     Dates: start: 20170620
  4. FLUPENTIXOL;MELITRACEN [Suspect]
     Active Substance: FLUPENTIXOL\MELITRACEN
     Indication: PRODUCT USED FOR UNKNOWN INDICATION
     Dosage: 10/0.5 MG (1-0-0)
     Dates: start: 20170504
  5. FLUPENTIXOL;MELITRACEN [Suspect]
     Active Substance: FLUPENTIXOL\MELITRACEN
     Dosage: ONCE DAILY (QD)
     Dates: start: 20170504
  6. RISPERIDONE. [Interacting]
     Active Substance: RISPERIDONE
     Indication: PRODUCT USED FOR UNKNOWN INDICATION
     Dosage: UNKNOWN DOSE
     Dates: start: 20170817
  7. FLUOXETINE [Interacting]
     Active Substance: FLUOXETINE HYDROCHLORIDE
     Indication: DEPRESSION
     Dosage: 20 MG 1-0-0
     Dates: start: 201403
  8. LOSARTAN HYDROCHLOROTHIAZIDE ACTAVIS [Concomitant]
     Active Substance: HYDROCHLOROTHIAZIDE\LOSARTAN POTASSIUM
     Dosage: UNK, Q4D
     Dates: start: 20170403
  9. LEVETIRACETAM. [Suspect]
     Active Substance: LEVETIRACETAM
     Indication: PRODUCT USED FOR UNKNOWN INDICATION
     Dosage: 500 MG, BID,1-0-1
     Dates: start: 201706, end: 201708
  10. AMLODIPINE [Concomitant]
     Active Substance: AMLODIPINE BESYLATE
     Dosage: 5 MG, AM,1-0-0
  11. QUETIAPINE. [Suspect]
     Active Substance: QUETIAPINE
     Indication: HALLUCINATION
     Dosage: 25 MG, PM,0-0-1
  12. AMIODARONE [Concomitant]
     Active Substance: AMIODARONE
     Indication: PRODUCT USED FOR UNKNOWN INDICATION
     Dosage: 200 MG (0-1-0)
     Dates: start: 20170717
  13. LOSARTAN AND HYDROCHLOROTHIAZIDE [Concomitant]
     Active Substance: HYDROCHLOROTHIAZIDE\LOSARTAN POTASSIUM
     Indication: PRODUCT USED FOR UNKNOWN INDICATION
     Dosage: ONCE DAILY (QD)
     Dates: start: 20170403
  14. LOSARTAN HYDROCHLOROTHIAZIDE ACTAVIS [Concomitant]
     Active Substance: HYDROCHLOROTHIAZIDE\LOSARTAN POTASSIUM
     Indication: PRODUCT USED FOR UNKNOWN INDICATION
     Dosage: 1 QD, AM
  15. PRAVASTATIN. [Concomitant]
     Active Substance: PRAVASTATIN
     Dosage: 20 MG, Q4D
     Dates: start: 20170426
  16. QUETIAPINE. [Suspect]
     Active Substance: QUETIAPINE
     Indication: DEAFNESS
     Dosage: 25 MG, ONCE DAILY (QD) (0-0-1)
     Dates: end: 20170809
  17. BISOPROLOL [Concomitant]
     Active Substance: BISOPROLOL
     Indication: PRODUCT USED FOR UNKNOWN INDICATION
     Dosage: 2.5 MG, (1-1/2-0)
     Dates: start: 20170414
  18. PRAVASTATIN. [Concomitant]
     Active Substance: PRAVASTATIN
     Indication: PRODUCT USED FOR UNKNOWN INDICATION
     Dosage: 20 MG, PM,(0-0-1)

REACTIONS (12)
  - Polyuria [Unknown]
  - Weight increased [Unknown]
  - Hallucination [Unknown]
  - Serotonin syndrome [Unknown]
  - Oedema [Unknown]
  - Hallucination, auditory [Unknown]
  - Suicidal ideation [Unknown]
  - Hyperhidrosis [Unknown]
  - Drug interaction [Unknown]
  - Tinnitus [Unknown]
  - Sleep disorder [Unknown]
  - Hyperthermia [Unknown]

NARRATIVE: CASE EVENT DATE: 20170817
